FAERS Safety Report 9008685 (Version 1)
Quarter: 2013Q1

REPORT INFORMATION
  Report Type: Spontaneous
  Country: BR (occurrence: BR)
  Receive Date: 20130111
  Receipt Date: 20130111
  Transmission Date: 20140127
  Serious: Yes (Other)
  Sender: FDA-Public Use
  Company Number: BR-BAXTER-2013BAX000486

PATIENT
  Sex: 0

DRUGS (1)
  1. CLORETO DE [Suspect]
     Indication: PRODUCT USED FOR UNKNOWN INDICATION
     Route: 065

REACTIONS (3)
  - Tremor [Unknown]
  - Chills [Unknown]
  - Cyanosis [Unknown]
